FAERS Safety Report 9744072 (Version 3)
Quarter: 2014Q1

REPORT INFORMATION
  Report Type: Spontaneous
  Country: US (occurrence: US)
  Receive Date: 20131210
  Receipt Date: 20140220
  Transmission Date: 20141002
  Serious: Yes (Hospitalization)
  Sender: FDA-Public Use
  Company Number: US-BAYER-2013-149134

PATIENT
  Age: 29 Year
  Sex: Female

DRUGS (3)
  1. MIRENA [Suspect]
     Indication: CONTRACEPTION
     Dosage: 20 MCG/24HR, CONT
     Route: 015
     Dates: start: 20110615, end: 20130315
  2. FLAGYL [Concomitant]
  3. ACYCLOVIR [ACICLOVIR] [Concomitant]
     Indication: HERPES VIRUS INFECTION
     Dosage: UNK
     Dates: start: 20130116, end: 20130817

REACTIONS (8)
  - Uterine perforation [None]
  - Pelvic pain [None]
  - Emotional distress [None]
  - Injury [None]
  - Device dislocation [None]
  - Pain [None]
  - Abdominal pain lower [None]
  - Device issue [None]
